FAERS Safety Report 7965386-X (Version None)
Quarter: 2011Q4

REPORT INFORMATION
  Report Type: 
  Country: None (occurrence: None)
  Receive Date: 20111208
  Receipt Date: 20111128
  Transmission Date: 20120403
  Serious: Yes (Death)
  Sender: FDA-Public Use
  Company Number: US-MYLANLABS-2011S1024450

PATIENT
  Age: 78 Year
  Sex: Male

DRUGS (10)
  1. SPIRONOLACTONE [Suspect]
  2. OMEPRAZOLE [Suspect]
  3. NIFEDIPINE [Concomitant]
  4. LORAZEPAM [Suspect]
  5. GLIPIZIDE [Suspect]
  6. HYDROCODONE [Concomitant]
  7. PROCHLORPERAZINE MALEATE [Suspect]
  8. NITROSTAT [Concomitant]
  9. SIMETHICONE [Concomitant]
  10. FUROSEMIDE [Suspect]

REACTIONS (1)
  - DEATH [None]
